FAERS Safety Report 9173837 (Version 1)
Quarter: 2013Q1

REPORT INFORMATION
  Report Type: Spontaneous
  Country: US (occurrence: US)
  Receive Date: 20130320
  Receipt Date: 20130320
  Transmission Date: 20140127
  Serious: No
  Sender: FDA-Public Use
  Company Number: US-009507513-1303USA007650

PATIENT
  Sex: Female

DRUGS (3)
  1. BOCEPREVIR [Suspect]
     Indication: CHRONIC HEPATITIS C
     Dosage: UNK
     Route: 065
     Dates: start: 20120830
  2. RIBAVIRIN [Suspect]
     Indication: CHRONIC HEPATITIS C
     Dosage: DIVIDED DOSES (1 IN 1 D)
     Route: 048
     Dates: start: 20120802
  3. PEGASYS [Suspect]
     Indication: CHRONIC HEPATITIS C
     Dosage: 180 MICROGRAM, QW
     Route: 058
     Dates: start: 20120802

REACTIONS (6)
  - Injection site erythema [Unknown]
  - Vessel puncture site pain [Unknown]
  - Rash erythematous [Unknown]
  - Rash pruritic [Unknown]
  - Dizziness [Unknown]
  - Hepatic cirrhosis [Unknown]
